FAERS Safety Report 5710068-8 (Version None)
Quarter: 2008Q2

REPORT INFORMATION
  Report Type: 
  Country: None (occurrence: None)
  Receive Date: 20080418
  Receipt Date: 20070824
  Transmission Date: 20081010
  Serious: No
  Sender: FDA-Public Use
  Company Number: US-ASTRAZENECA-2007UW20309

PATIENT
  Age: 51 Year
  Sex: Male
  Weight: 95.3 kg

DRUGS (5)
  1. TOPROL-XL [Suspect]
     Indication: ARRHYTHMIA
     Route: 048
     Dates: start: 20070823
  2. XANAX [Concomitant]
  3. ULTRAM [Concomitant]
  4. VICADAN [Concomitant]
  5. IBUPROFEN [Concomitant]

REACTIONS (6)
  - COUGH [None]
  - DISORIENTATION [None]
  - DIZZINESS [None]
  - EYE IRRITATION [None]
  - INCREASED UPPER AIRWAY SECRETION [None]
  - INSOMNIA [None]
